FAERS Safety Report 20362168 (Version 2)
Quarter: 2022Q1

REPORT INFORMATION
  Report Type: Spontaneous
  Country: JP (occurrence: None)
  Receive Date: 20220121
  Receipt Date: 20220125
  Transmission Date: 20220423
  Serious: Yes (Other)
  Sender: FDA-Public Use
  Company Number: 2022A025341

PATIENT
  Sex: Female

DRUGS (4)
  1. FASENRA [Suspect]
     Active Substance: BENRALIZUMAB
     Indication: Asthma
     Dosage: DOSE UNKNOWN
     Route: 058
  2. SULTANOL [Concomitant]
     Active Substance: ALBUTEROL SULFATE
     Indication: Asthma
     Dosage: DOSE UNKNOWN
     Route: 055
  3. PROCATEROL HYDROCHLORIDE [Concomitant]
     Active Substance: PROCATEROL HYDROCHLORIDE
     Indication: Asthma
     Dosage: DOSE UNKNOWN
     Route: 055
  4. TRELEGY ELLIPTA [Concomitant]
     Active Substance: FLUTICASONE FUROATE\UMECLIDINIUM BROMIDE\VILANTEROL TRIFENATATE
     Indication: Asthma
     Dosage: DOSE UNKNOWN
     Route: 055

REACTIONS (23)
  - Deafness [Unknown]
  - Polyneuropathy [Unknown]
  - Empyema [Unknown]
  - Abdominal pain [Unknown]
  - Asthma [Unknown]
  - Formication [Unknown]
  - Eosinophil count increased [Unknown]
  - Pruritus [Not Recovered/Not Resolved]
  - Gastroenteritis eosinophilic [Unknown]
  - Limb discomfort [Unknown]
  - Nasal polyps [Unknown]
  - Neuritis [Unknown]
  - Insomnia [Unknown]
  - Tinnitus [Unknown]
  - Vomiting [Unknown]
  - Hypoacusis [Unknown]
  - Underweight [Unknown]
  - Chronic eosinophilic rhinosinusitis [Unknown]
  - Eosinophilic otitis media [Unknown]
  - Pain in extremity [Unknown]
  - Dysstasia [Recovered/Resolved]
  - Hypoaesthesia [Unknown]
  - Off label use [Unknown]
